FAERS Safety Report 17471299 (Version 1)
Quarter: 2020Q1

REPORT INFORMATION
  Report Type: Report from Study
  Country: None (occurrence: IL)
  Receive Date: 20200227
  Receipt Date: 20200227
  Transmission Date: 20200409
  Serious: Yes (Death)
  Sender: FDA-Public Use
  Company Number: IL-ABBVIE-20K-082-3294185-00

PATIENT

DRUGS (1)
  1. DUODOPA [Suspect]
     Active Substance: CARBIDOPA\LEVODOPA
     Indication: PARKINSON^S DISEASE
     Dosage: CURRENT MORNING DOSE- 15.5 ML, CONTINUOUS RATE- 4.2 ML/ HOUR,??CURRENT EXTRA DOSE- 2.5 ML
     Route: 050
     Dates: start: 20170731

REACTIONS (2)
  - Decubitus ulcer [Fatal]
  - Gallbladder necrosis [Fatal]
